FAERS Safety Report 19841688 (Version 1)
Quarter: 2021Q3

REPORT INFORMATION
  Report Type: Spontaneous
  Country: DE (occurrence: DE)
  Receive Date: 20210916
  Receipt Date: 20210916
  Transmission Date: 20211014
  Serious: Yes (Hospitalization)
  Sender: FDA-Public Use
  Company Number: NVSC2021DE205496

PATIENT
  Age: 63 Year
  Sex: Female

DRUGS (14)
  1. DEXAMETHASONE. [Concomitant]
     Active Substance: DEXAMETHASONE
     Indication: CHEMOTHERAPY SIDE EFFECT PROPHYLAXIS
     Dosage: 20 MG, Q3W
     Route: 042
     Dates: start: 20210309
  2. PACLITAXEL. [Concomitant]
     Active Substance: PACLITAXEL
     Dosage: 303 MG, TOTAL
     Route: 065
     Dates: start: 20210331, end: 20210331
  3. BEVACIZUMAB. [Concomitant]
     Active Substance: BEVACIZUMAB
     Indication: OVARIAN CANCER
     Dosage: 1080 MG, TOTAL
     Route: 065
     Dates: start: 20210330, end: 20210330
  4. FAMOTIDINE. [Concomitant]
     Active Substance: FAMOTIDINE
     Indication: CHEMOTHERAPY SIDE EFFECT PROPHYLAXIS
     Dosage: 20 MG, Q3W
     Route: 048
     Dates: start: 20210309
  5. PACLITAXEL. [Concomitant]
     Active Substance: PACLITAXEL
     Indication: OVARIAN CANCER
     Dosage: 301 MG, TOTAL
     Route: 065
     Dates: start: 20210309, end: 20210309
  6. APREPITANT. [Concomitant]
     Active Substance: APREPITANT
     Indication: CHEMOTHERAPY SIDE EFFECT PROPHYLAXIS
     Dosage: 125 MG, Q3W
     Route: 048
     Dates: start: 20210309
  7. GRANISETRON [Concomitant]
     Active Substance: GRANISETRON
     Indication: CHEMOTHERAPY SIDE EFFECT PROPHYLAXIS
     Dosage: 1 MG, Q3W
     Route: 042
     Dates: start: 20210309
  8. BEVACIZUMAB. [Concomitant]
     Active Substance: BEVACIZUMAB
     Dosage: 1080 MG, TOTAL
     Route: 065
     Dates: start: 20210422, end: 20210422
  9. DIMETINDENE MALEATE [Concomitant]
     Active Substance: DIMETHINDENE MALEATE
     Indication: CHEMOTHERAPY SIDE EFFECT PROPHYLAXIS
     Dosage: 4 MG, Q3W
     Route: 042
     Dates: start: 20210309
  10. PACLITAXEL. [Concomitant]
     Active Substance: PACLITAXEL
     Dosage: 303 MG, TOTAL
     Route: 065
     Dates: start: 20210512, end: 20210512
  11. CARBOPLATIN. [Suspect]
     Active Substance: CARBOPLATIN
     Indication: OVARIAN CANCER
     Dosage: 490 MG, TOTAL
     Route: 065
     Dates: start: 20210309
  12. BEVACIZUMAB. [Concomitant]
     Active Substance: BEVACIZUMAB
     Dosage: 1080 MG, TOTAL
     Route: 065
     Dates: start: 20210512, end: 20210512
  13. PACLITAXEL. [Concomitant]
     Active Substance: PACLITAXEL
     Dosage: 303 MG, TOTAL
     Route: 065
     Dates: start: 20210423, end: 20210423
  14. EFEROX [Concomitant]
     Active Substance: LEVOTHYROXINE SODIUM
     Indication: THYROID OPERATION
     Dosage: 88 UG, QD
     Route: 048
     Dates: start: 19940101

REACTIONS (1)
  - Vaccination complication [Recovered/Resolved]

NARRATIVE: CASE EVENT DATE: 20210312
